FAERS Safety Report 5583576-0 (Version None)
Quarter: 2007Q4

REPORT INFORMATION
  Report Type: 
  Country: None (occurrence: None)
  Receive Date: 20071231
  Receipt Date: 20071218
  Transmission Date: 20080405
  Serious: Yes (Other)
  Sender: FDA-Public Use
  Company Number: CHPA2007US13848

PATIENT
  Age: 42 Year
  Sex: Female
  Weight: 63.5 kg

DRUGS (1)
  1. EXCEDRIN PM (NCH)(ACETAMINOPHEN (PARACETAMOL), DIPHENHYDRAMINE HYDROCH [Suspect]
     Dosage: 10 DF, QD, ORAL
     Route: 048
     Dates: start: 20071218

REACTIONS (2)
  - ACCIDENTAL OVERDOSE [None]
  - NO ADVERSE DRUG REACTION [None]
